APPROVED DRUG PRODUCT: APOMORPHINE HYDROCHLORIDE
Active Ingredient: APOMORPHINE HYDROCHLORIDE
Strength: 30MG/3ML (10MG/ML)
Dosage Form/Route: INJECTABLE;SUBCUTANEOUS
Application: A212025 | Product #001 | TE Code: AP
Applicant: TP ANDA HOLDINGS LLC
Approved: Feb 23, 2022 | RLD: No | RS: No | Type: RX